FAERS Safety Report 4585329-9 (Version None)
Quarter: 2005Q1

REPORT INFORMATION
  Report Type: 
  Country: None (occurrence: None)
  Receive Date: 20050214
  Receipt Date: 20050131
  Transmission Date: 20050727
  Serious: Yes (Hospitalization, Other)
  Sender: FDA-Public Use
  Company Number: 2005023545

PATIENT
  Weight: 70.3075 kg

DRUGS (4)
  1. NARDIL [Suspect]
     Indication: BIPOLAR I DISORDER
     Dosage: 45 MG (15 MG, 1 IN 1 D), ORAL
     Route: 048
  2. QUETIAPINE FUMARATE [Suspect]
     Indication: BIPOLAR I DISORDER
     Dosage: 50 MG (50 MG, 1 IN 1 D), ORAL
     Route: 048
  3. ARIPIPRAZOLE (ARIPIPRAZOLE) [Suspect]
     Indication: BIPOLAR I DISORDER
     Dosage: 10 MG (10 MG, 1 IN 1 D), ORAL
     Route: 048
     Dates: start: 20041220, end: 20050101
  4. LITHIUM (LITHIUM) [Concomitant]

REACTIONS (12)
  - ANORGASMIA [None]
  - ANXIETY [None]
  - CONDITION AGGRAVATED [None]
  - DEPRESSION [None]
  - DRUG INTERACTION [None]
  - DRY MOUTH [None]
  - MUSCLE RIGIDITY [None]
  - NERVOUS SYSTEM DISORDER [None]
  - SUICIDAL IDEATION [None]
  - THERAPEUTIC RESPONSE UNEXPECTED [None]
  - TREMOR [None]
  - VISION BLURRED [None]
